FAERS Safety Report 8722306 (Version 4)
Quarter: 2013Q4

REPORT INFORMATION
  Report Type: Spontaneous
  Country: JP (occurrence: JP)
  Receive Date: 20120814
  Receipt Date: 20131031
  Transmission Date: 20140711
  Serious: Yes (Other)
  Sender: FDA-Public Use
  Company Number: JP-MERCK-1208JPN004335

PATIENT
  Age: 77 Year
  Sex: Female

DRUGS (8)
  1. GASTER D [Suspect]
     Dosage: 20 MG, BID
     Route: 048
     Dates: start: 20120731, end: 20120802
  2. BONOTEO [Concomitant]
     Indication: OSTEOPOROSIS
     Dosage: 50 MG, ONCE PER 4 WEEKS
     Route: 048
     Dates: start: 20120802
  3. MICARDIS [Concomitant]
     Indication: HYPERTENSION
     Dosage: UNK
  4. ADALAT L [Concomitant]
     Dosage: UNK
  5. ARTIST [Concomitant]
     Dosage: UNK
  6. FOSAMAC TABLETS 35MG [Concomitant]
     Dosage: UNK
     Route: 048
     Dates: end: 2012
  7. LANSAP [Concomitant]
     Indication: HELICOBACTER TEST POSITIVE
     Route: 048
  8. PARIET [Concomitant]
     Dosage: UNK
     Dates: start: 20120622

REACTIONS (1)
  - Hypotension [Recovered/Resolved]
